FAERS Safety Report 7883596-7 (Version None)
Quarter: 2011Q4

REPORT INFORMATION
  Report Type: 
  Country: None (occurrence: None)
  Receive Date: 20111102
  Receipt Date: 20111021
  Transmission Date: 20120403
  Serious: Yes (Death)
  Sender: FDA-Public Use
  Company Number: JP-BRISTOL-MYERS SQUIBB COMPANY-16203622

PATIENT
  Age: 60 Year
  Sex: Male

DRUGS (3)
  1. ADRIAMYCIN PFS [Suspect]
     Dosage: ON DAYS 1 AND 15
  2. CISPLATIN [Suspect]
     Dosage: ON DAYS 1-5, 8-12, 15-19 AND 22-26
  3. FLUOROURACIL [Suspect]
     Dosage: ON DAYS 1-26

REACTIONS (1)
  - TRACHEO-OESOPHAGEAL FISTULA [None]
